FAERS Safety Report 6810916-4 (Version None)
Quarter: 2010Q2

REPORT INFORMATION
  Report Type: 
  Country: None (occurrence: None)
  Receive Date: 20100630
  Receipt Date: 20081001
  Transmission Date: 20101027
  Serious: No
  Sender: FDA-Public Use
  Company Number: US-PFIZER INC-2008083005

PATIENT
  Sex: Female
  Weight: 59.1 kg

DRUGS (17)
  1. NICOTROL [Suspect]
     Indication: SMOKING CESSATION THERAPY
     Route: 055
     Dates: start: 20080911
  2. SEROQUEL [Concomitant]
  3. CELEXA [Concomitant]
  4. PAXIL [Concomitant]
  5. VALIUM [Concomitant]
  6. MONTELUKAST SODIUM [Concomitant]
  7. ZYRTEC [Concomitant]
  8. ROZEREM [Concomitant]
  9. RANITIDINE [Concomitant]
  10. ADDERALL XR 10 [Concomitant]
  11. KLONOPIN [Concomitant]
  12. HYDROCODONE [Concomitant]
  13. SOMA [Concomitant]
  14. ALBUTEROL [Concomitant]
     Indication: ASTHMA
  15. XOPENEX [Concomitant]
     Indication: ASTHMA
  16. SUMATRIPTAN SUCCINATE (IMITREX) [Concomitant]
     Indication: MIGRAINE
  17. ZOFRAN [Concomitant]
     Indication: NAUSEA

REACTIONS (1)
  - TOOTH DISCOLOURATION [None]
